FAERS Safety Report 6112539-1 (Version None)
Quarter: 2009Q1

REPORT INFORMATION
  Report Type: 
  Country: None (occurrence: None)
  Receive Date: 20090312
  Receipt Date: 20090306
  Transmission Date: 20090719
  Serious: Yes (Hospitalization, Other)
  Sender: FDA-Public Use
  Company Number: AU-SP-2007-04141

PATIENT
  Age: 70 Year
  Sex: Male

DRUGS (7)
  1. IMMUCYST [Suspect]
     Indication: TRANSITIONAL CELL CARCINOMA
     Route: 043
     Dates: start: 20060424, end: 20060424
  2. IMMUCYST [Suspect]
     Route: 043
     Dates: start: 20060424, end: 20060424
  3. IMMUCYST [Suspect]
     Route: 043
     Dates: start: 20060424, end: 20060424
  4. IMMUCYST [Suspect]
     Route: 043
     Dates: start: 20060424, end: 20060424
  5. EPROSARTAN [Concomitant]
     Indication: HYPERTENSION
     Route: 048
     Dates: end: 20060426
  6. AROPAX [Concomitant]
     Indication: DEPRESSION
     Route: 048
     Dates: end: 20060426
  7. LIPITOR [Concomitant]
     Indication: HYPERCHOLESTEROLAEMIA
     Route: 048
     Dates: end: 20060426

REACTIONS (26)
  - ABDOMINAL DISCOMFORT [None]
  - ACUTE RESPIRATORY DISTRESS SYNDROME [None]
  - ANAEMIA [None]
  - CRITICAL ILLNESS POLYNEUROPATHY [None]
  - DELIRIUM [None]
  - DIARRHOEA [None]
  - DISSEMINATED INTRAVASCULAR COAGULATION [None]
  - DRUG RESISTANCE [None]
  - DYSURIA [None]
  - HAEMATURIA [None]
  - HEPATITIS [None]
  - HYPERSENSITIVITY [None]
  - HYPOTENSION [None]
  - HYPOXIA [None]
  - JAUNDICE CHOLESTATIC [None]
  - LIVER FUNCTION TEST ABNORMAL [None]
  - MENTAL STATUS CHANGES [None]
  - METABOLIC ACIDOSIS [None]
  - MYCOBACTERIA BLOOD TEST POSITIVE [None]
  - NAUSEA [None]
  - PYREXIA [None]
  - RENAL FAILURE ACUTE [None]
  - SEPSIS SYNDROME [None]
  - TACHYCARDIA [None]
  - THROMBOCYTOPENIA [None]
  - VOMITING [None]
